FAERS Safety Report 22065824 (Version 1)
Quarter: 2023Q1

REPORT INFORMATION
  Report Type: Spontaneous
  Country: US (occurrence: None)
  Receive Date: 20230305
  Receipt Date: 20230305
  Transmission Date: 20230417
  Serious: Yes (Life-Threatening, Hospitalization, Disabling, Other)
  Sender: FDA-Public Use
  Company Number: None

PATIENT
  Age: 36 Year
  Sex: Female
  Weight: 49.9 kg

DRUGS (5)
  1. CYMBALTA [Suspect]
     Active Substance: DULOXETINE HYDROCHLORIDE
  2. CLONAZEPAM [Suspect]
     Active Substance: CLONAZEPAM
  3. ZOFRAN [Concomitant]
     Active Substance: ONDANSETRON HYDROCHLORIDE
  4. TRAMADOL [Concomitant]
     Active Substance: TRAMADOL
  5. Multi vitamin daily [Concomitant]

REACTIONS (19)
  - Dry mouth [None]
  - Tendon rupture [None]
  - Tendon rupture [None]
  - Migraine [None]
  - Suicidal ideation [None]
  - Depression [None]
  - Anxiety [None]
  - Oral pain [None]
  - Tooth fracture [None]
  - Tooth extraction [None]
  - Superior mesenteric artery syndrome [None]
  - Coeliac artery compression syndrome [None]
  - Hernia [None]
  - Impaired gastric emptying [None]
  - Clostridium difficile infection [None]
  - Candida sepsis [None]
  - Crying [None]
  - Procedural pain [None]
  - Device breakage [None]

NARRATIVE: CASE EVENT DATE: 20000421
